FAERS Safety Report 11638362 (Version 1)
Quarter: 2015Q4

REPORT INFORMATION
  Report Type: Spontaneous
  Country: US (occurrence: US)
  Receive Date: 20151016
  Receipt Date: 20151016
  Transmission Date: 20160304
  Serious: No
  Sender: FDA-Public Use
  Company Number: US-INDIVIOR-RB-72964-2014

PATIENT
  Age: 26 Year
  Sex: Male

DRUGS (1)
  1. SUBOXONE [Suspect]
     Active Substance: BUPRENORPHINE HYDROCHLORIDE\NALOXONE HYDROCHLORIDE
     Indication: PRODUCT USED FOR UNKNOWN INDICATION
     Dosage: 8 MG, BID
     Route: 065
     Dates: start: 201409

REACTIONS (5)
  - Crying [Recovered/Resolved]
  - Insomnia [Recovered/Resolved]
  - Intentional product misuse [Not Recovered/Not Resolved]
  - Feeling abnormal [Recovered/Resolved]
  - Substance abuse [Recovered/Resolved]
